FAERS Safety Report 4540887-5 (Version None)
Quarter: 2004Q4

REPORT INFORMATION
  Report Type: 
  Country: None (occurrence: None)
  Receive Date: 20041229
  Receipt Date: 20041221
  Transmission Date: 20050328
  Serious: Yes (Death, Other)
  Sender: FDA-Public Use
  Company Number: US-JNJFOC-20031100452

PATIENT
  Sex: Female

DRUGS (1)
  1. REMINYL [Suspect]
     Indication: DEMENTIA
     Dosage: BEGINNING OR OR BEFORE APR-03.
     Route: 049

REACTIONS (3)
  - DEATH [None]
  - DEMENTIA [None]
  - DYSPHAGIA [None]
